FAERS Safety Report 14624605 (Version 1)
Quarter: 2018Q1

REPORT INFORMATION
  Report Type: Spontaneous
  Country: JP (occurrence: JP)
  Receive Date: 20180312
  Receipt Date: 20180312
  Transmission Date: 20180509
  Serious: Yes (Hospitalization, Other)
  Sender: FDA-Public Use
  Company Number: PHHY2018JP033072

PATIENT
  Age: 43 Year
  Sex: Female
  Weight: 53.4 kg

DRUGS (5)
  1. EPIRUBICIN [Suspect]
     Active Substance: EPIRUBICIN
     Indication: BREAST CANCER STAGE III
     Dosage: 140 MG/ BODY
     Route: 065
  2. TRASTUZUMAB. [Suspect]
     Active Substance: TRASTUZUMAB
     Indication: BREAST CANCER STAGE III
     Dosage: 300 MG/ BODY
     Route: 065
  3. CYCLOPHOSPHAMIDE. [Suspect]
     Active Substance: CYCLOPHOSPHAMIDE
     Indication: BREAST CANCER STAGE III
     Dosage: 700 MG/ BODY
     Route: 065
  4. DOCETAXEL. [Suspect]
     Active Substance: DOCETAXEL
     Indication: BREAST CANCER STAGE III
     Dosage: 110 MG/ BODY
     Route: 065
  5. FLOUROURACIL [Suspect]
     Active Substance: FLUOROURACIL
     Indication: BREAST CANCER STAGE III
     Dosage: 700 MG/BODY
     Route: 065

REACTIONS (7)
  - Pyrexia [Unknown]
  - Pelvic abscess [Unknown]
  - Pyrexia [Recovered/Resolved]
  - Abdominal pain lower [Unknown]
  - Diarrhoea [Unknown]
  - Appendicitis [Unknown]
  - Nausea [Unknown]
